FAERS Safety Report 13277959 (Version 3)
Quarter: 2018Q4

REPORT INFORMATION
  Report Type: Spontaneous
  Country: US (occurrence: US)
  Receive Date: 20170228
  Receipt Date: 20181205
  Transmission Date: 20190204
  Serious: No
  Sender: FDA-Public Use
  Company Number: US-PFIZER INC-2017077296

PATIENT
  Age: 13 Year
  Sex: Female

DRUGS (2)
  1. GENOTROPIN [Suspect]
     Active Substance: SOMATROPIN
     Indication: GROWTH HORMONE DEFICIENCY
     Dosage: 1.4 MG, DAILY
     Route: 058
     Dates: start: 2009
  2. GENOTROPIN [Suspect]
     Active Substance: SOMATROPIN
     Dosage: 1.4 MG, DAILY
     Dates: start: 20160420

REACTIONS (12)
  - Cough [Unknown]
  - Lung disorder [Unknown]
  - Product dose omission [Unknown]
  - Blood thyroid stimulating hormone increased [Unknown]
  - Insulin-like growth factor increased [Unknown]
  - Blood 25-hydroxycholecalciferol decreased [Unknown]
  - Insulin-like growth factor decreased [Unknown]
  - Dizziness [Unknown]
  - Somnolence [Unknown]
  - Device issue [Unknown]
  - Bone density increased [Unknown]
  - Dyspnoea [Unknown]

NARRATIVE: CASE EVENT DATE: 201701
